FAERS Safety Report 7413549-4 (Version None)
Quarter: 2011Q2

REPORT INFORMATION
  Report Type: 
  Country: None (occurrence: None)
  Receive Date: 20110405
  Receipt Date: 20110328
  Transmission Date: 20111010
  Serious: Yes (Other)
  Sender: FDA-Public Use
  Company Number: ACO_22131_2011

PATIENT
  Age: 68 Year
  Sex: Female
  Weight: 47.6 kg

DRUGS (15)
  1. SIMVASTATIN [Concomitant]
  2. FIBER (FIBRE, DIETARY) [Concomitant]
  3. SERTRALINE HYDROCHLORIDE [Concomitant]
  4. MULTIVITAMIN (VITAMIN NOS) [Concomitant]
  5. TIMOLOL MALEATE [Concomitant]
  6. FENOFIBRATE [Concomitant]
  7. FISH OIL (FISH OIL) [Concomitant]
  8. POTASSIUM CITRATE [Concomitant]
  9. NICOTROL [Concomitant]
  10. AMPYRA [Suspect]
     Indication: GAIT DISTURBANCE
     Dosage: 10 MG, BID, ORAL
     Route: 048
     Dates: start: 20110202, end: 20110204
  11. AMPYRA [Suspect]
     Indication: GAIT DISTURBANCE
     Dosage: 10 MG, BID, ORAL
     Route: 048
     Dates: start: 20110219, end: 20110305
  12. AMPYRA [Suspect]
     Indication: GAIT DISTURBANCE
     Dosage: 10 MG, BID, ORAL
     Route: 048
     Dates: start: 20110205, end: 20110218
  13. COPAXONE [Concomitant]
  14. STOOL SOFTENER (DOCUSATE SODIUM) [Concomitant]
  15. AMANTADINE HCL [Concomitant]

REACTIONS (6)
  - CONVULSION [None]
  - INAPPROPRIATE SCHEDULE OF DRUG ADMINISTRATION [None]
  - UNRESPONSIVE TO STIMULI [None]
  - GASTROINTESTINAL VIRAL INFECTION [None]
  - MUSCULOSKELETAL STIFFNESS [None]
  - MULTIPLE SCLEROSIS RELAPSE [None]
